FAERS Safety Report 6059294-1 (Version None)
Quarter: 2009Q1

REPORT INFORMATION
  Report Type: 
  Country: None (occurrence: None)
  Receive Date: 20090130
  Receipt Date: 20090126
  Transmission Date: 20090719
  Serious: Yes (Death)
  Sender: FDA-Public Use
  Company Number: DE-ROCHE-610544

PATIENT
  Sex: Female
  Weight: 70 kg

DRUGS (6)
  1. MIRCERA [Suspect]
     Indication: NEPHROPATHY
     Route: 065
     Dates: start: 20080208, end: 20080731
  2. PLAVIX [Concomitant]
     Indication: CEREBROVASCULAR INSUFFICIENCY
     Dosage: DOSAGE: 0-1-0
     Route: 048
  3. ASPIRIN [Concomitant]
     Indication: CEREBROVASCULAR INSUFFICIENCY
     Dosage: DOSAGE: 0-1-0
     Route: 048
  4. BISOPROLOL [Concomitant]
     Dosage: DOSAGE: 1-0-0
     Route: 048
  5. INEGY [Concomitant]
     Indication: HYPERCHOLESTEROLAEMIA
     Dosage: DOSAGE: 0-1-0
     Route: 048
  6. DELIX [Concomitant]
     Indication: HYPERTENSION
     Dosage: DOSAGE: 0-1-0
     Route: 048

REACTIONS (1)
  - DEATH [None]
